FAERS Safety Report 19706003 (Version 6)
Quarter: 2022Q3

REPORT INFORMATION
  Report Type: Spontaneous
  Country: US (occurrence: US)
  Receive Date: 20210817
  Receipt Date: 20220824
  Transmission Date: 20221026
  Serious: Yes (Other)
  Sender: FDA-Public Use
  Company Number: US-SUN PHARMACEUTICAL INDUSTRIES LTD-2021R1-307800

PATIENT
  Age: 61 Year
  Sex: Female
  Weight: 90.703 kg

DRUGS (1)
  1. RANITIDINE [Suspect]
     Active Substance: RANITIDINE
     Indication: Product used for unknown indication
     Dosage: UNK
     Route: 065

REACTIONS (10)
  - Renal cancer [Unknown]
  - Bladder cancer [Unknown]
  - Pain [Unknown]
  - Injury [Unknown]
  - Emotional distress [Unknown]
  - Anxiety [Unknown]
  - Deformity [Unknown]
  - Hyperglycaemia [Unknown]
  - Sexually transmitted disease [Unknown]
  - Vaginal abscess [Unknown]

NARRATIVE: CASE EVENT DATE: 20170101
